FAERS Safety Report 10716861 (Version 1)
Quarter: 2015Q1

REPORT INFORMATION
  Report Type: Spontaneous
  Country: BR (occurrence: BR)
  Receive Date: 20150116
  Receipt Date: 20150116
  Transmission Date: 20150721
  Serious: Yes (Death, Hospitalization)
  Sender: FDA-Public Use
  Company Number: BR-ROCHE-1489165

PATIENT
  Age: 53 Year
  Sex: Female
  Weight: 67.5 kg

DRUGS (2)
  1. KADCYLA [Suspect]
     Active Substance: ADO-TRASTUZUMAB EMTANSINE
     Indication: BREAST CANCER
     Route: 042
  2. KADCYLA [Suspect]
     Active Substance: ADO-TRASTUZUMAB EMTANSINE
     Route: 042

REACTIONS (5)
  - Dyspnoea [Unknown]
  - Disease progression [Fatal]
  - Hypertension [Unknown]
  - Tremor [Unknown]
  - Tachycardia [Unknown]

NARRATIVE: CASE EVENT DATE: 20141107
